FAERS Safety Report 21955297 (Version 1)
Quarter: 2023Q1

REPORT INFORMATION
  Report Type: Other
  Country: US (occurrence: None)
  Receive Date: 20230206
  Receipt Date: 20230206
  Transmission Date: 20230418
  Serious: No
  Sender: FDA-Public Use
  Company Number: US-ROCHE-3272916

PATIENT
  Age: 68 Year
  Sex: Female
  Weight: 70.824 kg

DRUGS (7)
  1. OCREVUS [Suspect]
     Active Substance: OCRELIZUMAB
     Indication: Relapsing-remitting multiple sclerosis
     Dosage: 300MG?DOT: 14-JUL-2022,13-JAN-2022,23-JUN-2021,22-DEC-2020,20-JUN-2020,31-DEC-2019
     Route: 042
     Dates: start: 20191217
  2. OCREVUS [Suspect]
     Active Substance: OCRELIZUMAB
     Indication: Primary progressive multiple sclerosis
  3. CLONAZEPAM [Concomitant]
     Active Substance: CLONAZEPAM
  4. PAROXETINE [Concomitant]
     Active Substance: PAROXETINE
  5. DULOXETINE [Concomitant]
     Active Substance: DULOXETINE
  6. BACLOFEN [Concomitant]
     Active Substance: BACLOFEN
  7. MELOXICAM [Concomitant]
     Active Substance: MELOXICAM

REACTIONS (2)
  - COVID-19 [Recovered/Resolved]
  - Arthritis [Not Recovered/Not Resolved]

NARRATIVE: CASE EVENT DATE: 20230115
